FAERS Safety Report 6585524-3 (Version None)
Quarter: 2010Q1

REPORT INFORMATION
  Report Type: 
  Country: None (occurrence: None)
  Receive Date: 20100201
  Receipt Date: 20090811
  Transmission Date: 20100710
  Serious: Yes (Hospitalization)
  Sender: FDA-Public Use
  Company Number: 8050255

PATIENT
  Sex: Female
  Weight: 102.2 kg

DRUGS (6)
  1. KEPPRA [Suspect]
     Indication: CONVULSION
     Dosage: (500 MG BID ORAL)
     Route: 048
     Dates: start: 20060101, end: 20090501
  2. OXCARBAZEPINE [Concomitant]
  3. TOPIRAMATE [Concomitant]
  4. ADVAIR DISKUS 100/50 [Concomitant]
  5. TYLENOL-500 [Concomitant]
  6. MULTI-VITAMIN [Concomitant]

REACTIONS (1)
  - CONVULSION [None]
